FAERS Safety Report 20176436 (Version 2)
Quarter: 2021Q4

REPORT INFORMATION
  Report Type: Report from Study
  Country: AU (occurrence: AU)
  Receive Date: 20211213
  Receipt Date: 20211220
  Transmission Date: 20220303
  Serious: Yes (Hospitalization)
  Sender: FDA-Public Use
  Company Number: AU-GLAXOSMITHKLINE-AU2021GSK252447

PATIENT
  Age: 61 Year
  Sex: Male

DRUGS (43)
  1. BELANTAMAB MAFODOTIN [Suspect]
     Active Substance: BELANTAMAB MAFODOTIN
     Indication: Plasma cell myeloma
     Dosage: 2.5 MG/KG, CYC ON DAY 1 OF EVERY 28 DAY CYCLE
     Route: 042
  2. DEXAMETHASONE [Suspect]
     Active Substance: DEXAMETHASONE
     Indication: Plasma cell myeloma
     Dosage: 40 MG, CYC, ON DAY 1,8,15 AND 22 OF EVERY 28 DAY CYCLE
     Route: 048
  3. POMALIDOMIDE [Suspect]
     Active Substance: POMALIDOMIDE
     Indication: Plasma cell myeloma
     Dosage: 4 MG, DAY 1-21 DAY OF 28 DAY CYCLE
     Route: 048
  4. NEBIVOLOL [Concomitant]
     Active Substance: NEBIVOLOL
     Indication: Cardiomyopathy
     Dosage: 5 MG, QD
     Route: 048
     Dates: start: 20211107, end: 20211108
  5. THYROXINE [Concomitant]
     Active Substance: LEVOTHYROXINE
     Indication: Hypothyroidism
     Dosage: 150 UG, ONCE
     Route: 048
     Dates: start: 2016, end: 20211104
  6. THYROXINE [Concomitant]
     Active Substance: LEVOTHYROXINE
     Dosage: 100 UG, ONCE
     Route: 048
     Dates: start: 20211111
  7. THYROXINE [Concomitant]
     Active Substance: LEVOTHYROXINE
     Dosage: 150 UG, WE
     Route: 048
     Dates: start: 20211111
  8. VALACYCLOVIR HYDROCHLORIDE [Concomitant]
     Active Substance: VALACYCLOVIR HYDROCHLORIDE
     Indication: Antiviral prophylaxis
     Dosage: 500 MMOL, QD
     Route: 048
     Dates: start: 20160408
  9. SULFAMETHOXAZOLE\TRIMETHOPRIM [Concomitant]
     Active Substance: SULFAMETHOXAZOLE\TRIMETHOPRIM
     Indication: Bacteraemia
     Dosage: 800-160 MG
     Route: 048
     Dates: start: 20200408
  10. ZOLEDRONIC ACID [Concomitant]
     Active Substance: ZOLEDRONIC ACID
     Indication: Prophylaxis
     Dosage: 4 MG, Q3M
     Route: 042
     Dates: start: 20121220
  11. SENNA [Concomitant]
     Active Substance: SENNA LEAF\SENNOSIDES\SENNOSIDES A AND B
     Indication: Constipation
     Dosage: 2 DF, PRN
     Route: 048
     Dates: start: 20200510
  12. METOCLOPRAMIDE [Concomitant]
     Active Substance: METOCLOPRAMIDE
     Indication: Nausea
     Dosage: 10 MG, PRN
     Route: 048
     Dates: start: 20201216
  13. ONDANSETRON [Concomitant]
     Active Substance: ONDANSETRON
     Indication: Nausea
     Dosage: 4 MG, PRN
     Route: 048
     Dates: start: 20210211
  14. ONDANSETRON [Concomitant]
     Active Substance: ONDANSETRON
     Dosage: 4 MG, PRN
     Route: 060
     Dates: start: 20211105, end: 20211105
  15. ALLOPURINOL [Concomitant]
     Active Substance: ALLOPURINOL
     Indication: Tumour lysis syndrome
     Dosage: 300 MG, QD
     Route: 048
     Dates: start: 20211006, end: 20211029
  16. PIPERACILLIN SODIUM\TAZOBACTAM SODIUM [Concomitant]
     Active Substance: PIPERACILLIN SODIUM\TAZOBACTAM SODIUM
     Indication: Febrile neutropenia
     Dosage: 4.5 G, TID
     Route: 042
     Dates: start: 20211011, end: 20211013
  17. GRANULOCYTE COLONY-STIMULATING FACTOR NOS [Concomitant]
     Active Substance: GRANULOCYTE COLONY-STIMULATING FACTOR NOS
     Indication: Febrile neutropenia
     Dosage: 300 MMOL, QD
     Route: 058
     Dates: start: 20211011, end: 20211011
  18. GRANULOCYTE COLONY-STIMULATING FACTOR NOS [Concomitant]
     Active Substance: GRANULOCYTE COLONY-STIMULATING FACTOR NOS
     Dosage: 300 UG, ONCE
     Route: 058
     Dates: start: 20211027, end: 20211027
  19. GRANULOCYTE COLONY-STIMULATING FACTOR NOS [Concomitant]
     Active Substance: GRANULOCYTE COLONY-STIMULATING FACTOR NOS
     Dosage: 300 UG, QD
     Route: 058
     Dates: start: 20211101, end: 20211102
  20. GRANULOCYTE COLONY-STIMULATING FACTOR NOS [Concomitant]
     Active Substance: GRANULOCYTE COLONY-STIMULATING FACTOR NOS
     Dosage: 300 UG, 3 TIMES PER WEEK
     Route: 058
     Dates: start: 20211125
  21. CARBOXYMETHYLCELLULOSE [Concomitant]
     Active Substance: CARBOXYMETHYLCELLULOSE
     Indication: Eye disorder
     Dosage: 0.5%, QID
     Route: 047
     Dates: start: 20211008
  22. PANTOPRAZOLE [Concomitant]
     Active Substance: PANTOPRAZOLE
     Dosage: 40 MG, ONCE
     Route: 048
     Dates: start: 20211014
  23. CEFTRIAXONE [Concomitant]
     Active Substance: CEFTRIAXONE
     Indication: Febrile neutropenia
     Dosage: 1 G, WE
     Route: 042
     Dates: start: 20211010, end: 20211010
  24. BISOPROLOL [Concomitant]
     Active Substance: BISOPROLOL
     Indication: Cardiomyopathy
     Dosage: 2.5 MG, ONCE
     Route: 048
     Dates: start: 20210222, end: 20211007
  25. BISOPROLOL [Concomitant]
     Active Substance: BISOPROLOL
     Dosage: 1.25 MG, ONCE
     Route: 048
     Dates: start: 20211008, end: 20211010
  26. BISOPROLOL [Concomitant]
     Active Substance: BISOPROLOL
     Dosage: 1.25 MG, ONCE
     Route: 048
     Dates: start: 20211012, end: 20211013
  27. BISOPROLOL [Concomitant]
     Active Substance: BISOPROLOL
     Dosage: 2.25 MG, ONCE
     Route: 048
     Dates: start: 20211014, end: 20211104
  28. BISOPROLOL [Concomitant]
     Active Substance: BISOPROLOL
     Dosage: 2.5 MG, ONCE
     Route: 048
     Dates: start: 20211110
  29. SACUBITRIL VALSARTAN SODIUM TABLET [Concomitant]
     Indication: Ischaemic cardiomyopathy
     Dosage: 49/51 MG, QD
     Route: 048
     Dates: start: 20211012
  30. ENOXAPARIN [Concomitant]
     Active Substance: ENOXAPARIN
     Indication: Thrombosis prophylaxis
     Dosage: 40 MG, QD
     Route: 058
     Dates: start: 20211008, end: 20211010
  31. ENOXAPARIN [Concomitant]
     Active Substance: ENOXAPARIN
     Dosage: 40 MG, QD
     Route: 058
     Dates: start: 20211106, end: 20211129
  32. FUROSEMIDE [Concomitant]
     Active Substance: FUROSEMIDE
     Indication: Oedema peripheral
     Dosage: 40 MG, ONCE
     Route: 042
     Dates: start: 20211010, end: 20211010
  33. ACETAMINOPHEN [Concomitant]
     Active Substance: ACETAMINOPHEN
     Indication: Headache
     Dosage: 1000 MG, PRN
     Route: 048
     Dates: start: 20211008, end: 20211010
  34. ACETAMINOPHEN [Concomitant]
     Active Substance: ACETAMINOPHEN
     Indication: Pyrexia
     Dosage: 1000 MG, PRN
     Route: 048
     Dates: start: 20211010, end: 20211010
  35. ACETAMINOPHEN [Concomitant]
     Active Substance: ACETAMINOPHEN
     Dosage: 1000 MG, PRN
     Route: 048
     Dates: start: 20211105
  36. TEMAZEPAM [Concomitant]
     Active Substance: TEMAZEPAM
     Indication: Sleep disorder
     Dosage: 5-10 MG
     Route: 048
     Dates: start: 20211008, end: 20211009
  37. RASBURICASE [Concomitant]
     Active Substance: RASBURICASE
     Indication: Tumour lysis syndrome
     Dosage: 1.5 MG, ONCE
     Route: 042
     Dates: start: 20211009, end: 20211009
  38. LACTULOSE [Concomitant]
     Active Substance: LACTULOSE
     Indication: Constipation prophylaxis
     Dosage: 20 ML, PRN
     Route: 048
     Dates: start: 20211007, end: 20211008
  39. SENNA TABS [Concomitant]
     Active Substance: SENNOSIDES A AND B
     Indication: Constipation prophylaxis
     Dosage: 7.5 MG, PRN
     Route: 048
     Dates: start: 20211106, end: 20211107
  40. CEFAZOLIN [Concomitant]
     Active Substance: CEFAZOLIN
     Indication: Orthopaedic procedure
     Dosage: 2 G, TID (Q8H)
     Route: 042
     Dates: start: 20211105, end: 20211106
  41. MORPHINE [Concomitant]
     Active Substance: MORPHINE
     Indication: Pain
     Dosage: 2.5 MG, PRN
     Route: 042
     Dates: start: 20211105, end: 20211105
  42. OXYCODONE [Concomitant]
     Active Substance: OXYCODONE
     Indication: Pain
     Dosage: 5-10 MG, PRN
     Route: 048
     Dates: start: 20211105, end: 20211106
  43. OXYCODONE [Concomitant]
     Active Substance: OXYCODONE
     Dosage: 5 MG, PRN
     Route: 048
     Dates: start: 20211110

REACTIONS (1)
  - Hypotension [Not Recovered/Not Resolved]

NARRATIVE: CASE EVENT DATE: 20211208
